FAERS Safety Report 7034776-4 (Version None)
Quarter: 2010Q4

REPORT INFORMATION
  Report Type: 
  Country: None (occurrence: None)
  Receive Date: 20101008
  Receipt Date: 20101004
  Transmission Date: 20110411
  Serious: Yes (Other)
  Sender: FDA-Public Use
  Company Number: PHHY2010US60146

PATIENT
  Sex: Female
  Weight: 178 kg

DRUGS (9)
  1. LAMISIL [Suspect]
     Indication: ONYCHOMYCOSIS
     Dosage: 250 MG HALF TABLET TWICE DAILY
     Route: 048
     Dates: start: 20100823, end: 20100906
  2. AMARYL [Concomitant]
     Dosage: UNK
     Route: 048
  3. ASPIRIN [Concomitant]
     Dosage: UNK
     Route: 048
  4. CELEBREX [Concomitant]
     Dosage: UNK
     Route: 048
  5. CODERIT [Concomitant]
     Dosage: UNK
     Route: 048
  6. LYRICA [Concomitant]
     Dosage: UNK
     Route: 048
  7. METANX [Concomitant]
     Dosage: UNK
     Route: 048
  8. PHENERGAN [Concomitant]
     Dosage: UNK
     Route: 048
  9. TRAMADOL [Concomitant]
     Dosage: UNK
     Route: 048

REACTIONS (2)
  - DYSKINESIA [None]
  - MUSCLE SPASMS [None]
